FAERS Safety Report 12342195 (Version 1)
Quarter: 2016Q2

REPORT INFORMATION
  Report Type: Spontaneous
  Country: US (occurrence: US)
  Receive Date: 20160506
  Receipt Date: 20160506
  Transmission Date: 20160815
  Serious: No
  Sender: FDA-Public Use
  Company Number: US-ANACOR-2016ANA00120

PATIENT
  Age: 60 Year
  Sex: Female

DRUGS (3)
  1. UNSPECIFIED SUPPLEMENTS [Concomitant]
  2. UNSPECIFIED MEDICATIONS [Concomitant]
     Active Substance: UNSPECIFIED INGREDIENT
  3. KERYDIN [Suspect]
     Active Substance: TAVABOROLE
     Indication: ONYCHOMYCOSIS
     Dosage: UNK UNK, 1X/DAY
     Route: 061
     Dates: start: 20160219, end: 20160326

REACTIONS (4)
  - Application site exfoliation [Recovering/Resolving]
  - Application site erythema [Recovered/Resolved]
  - Application site vesicles [Recovered/Resolved]
  - Application site discomfort [Recovered/Resolved]

NARRATIVE: CASE EVENT DATE: 201603
